FAERS Safety Report 7163282-1 (Version None)
Quarter: 2010Q4

REPORT INFORMATION
  Report Type: 
  Country: None (occurrence: None)
  Receive Date: 20101215
  Receipt Date: 20100319
  Transmission Date: 20110411
  Serious: Yes (Other)
  Sender: FDA-Public Use
  Company Number: AU-PFIZER INC-2010036609

PATIENT
  Age: 49 Year
  Sex: Female
  Weight: 73.4 kg

DRUGS (2)
  1. LYRICA [Suspect]
     Indication: NEURALGIA
     Dosage: 75 MG, 1X/DAY
     Route: 048
     Dates: start: 20091016
  2. LYRICA [Suspect]
     Dosage: 150 MG, 1X/DAY
     Route: 048
     Dates: start: 20091111

REACTIONS (4)
  - ABDOMINAL DISTENSION [None]
  - CHROMATURIA [None]
  - JOINT SWELLING [None]
  - NAUSEA [None]
